FAERS Safety Report 7332297-2 (Version None)
Quarter: 2011Q1

REPORT INFORMATION
  Report Type: 
  Country: None (occurrence: None)
  Receive Date: 20110304
  Receipt Date: 20110224
  Transmission Date: 20110831
  Serious: Yes (Hospitalization)
  Sender: FDA-Public Use
  Company Number: DE-ROCHE-762026

PATIENT
  Sex: Male
  Weight: 98 kg

DRUGS (8)
  1. ALLOPURINOL [Concomitant]
     Route: 048
     Dates: start: 20110202
  2. AMARYL [Concomitant]
     Route: 048
     Dates: start: 20110123
  3. MOVIPREP [Concomitant]
     Indication: CONSTIPATION
     Dosage: DRUG NAME REPORTED: MOVICOL BTL.
     Route: 048
     Dates: start: 20110123
  4. IBUPROFEN [Concomitant]
     Indication: PAIN
     Route: 048
     Dates: start: 20110202
  5. PANTOZOL [Concomitant]
     Indication: ULCER
     Route: 048
     Dates: start: 20110123
  6. ACC 600 [Concomitant]
     Indication: THROMBOSIS PROPHYLAXIS
     Route: 048
     Dates: start: 20110202
  7. VOLTAREN [Concomitant]
     Indication: PAIN
     Route: 048
     Dates: start: 20110202
  8. CAPECITABINE [Suspect]
     Indication: RECTAL CANCER
     Dosage: LAST DOSE PRIOR TO SAE: 21 DEC 2010
     Route: 048
     Dates: start: 20101115

REACTIONS (1)
  - IMPAIRED HEALING [None]
